FAERS Safety Report 25728205 (Version 1)
Quarter: 2025Q3

REPORT INFORMATION
  Report Type: Spontaneous
  Country: CN (occurrence: CN)
  Receive Date: 20250826
  Receipt Date: 20250826
  Transmission Date: 20251020
  Serious: Yes (Other)
  Sender: Unknown Manufacturer
  Company Number: CN-MTPC-MTPC2025-0015213

PATIENT
  Age: 65 Year
  Sex: Female

DRUGS (8)
  1. EDARAVONE [Suspect]
     Active Substance: EDARAVONE
     Indication: Ischaemic stroke
     Route: 065
  2. ASPIRIN [Concomitant]
     Active Substance: ASPIRIN
     Indication: Ischaemic stroke
     Dosage: 100 MILLIGRAM, QD
     Route: 065
  3. ATORVASTATIN CALCIUM [Concomitant]
     Active Substance: ATORVASTATIN CALCIUM
     Dosage: 20 MILLIGRAM, QD
     Route: 065
  4. ATORVASTATIN CALCIUM [Concomitant]
     Active Substance: ATORVASTATIN CALCIUM
     Indication: Ischaemic stroke
     Dosage: 40 MILLIGRAM, QD
     Route: 065
  5. BUTYLPHTHALIDE [Concomitant]
     Active Substance: BUTYLPHTHALIDE
     Indication: Ischaemic stroke
     Route: 065
  6. CLOPIDOGREL BISULFATE [Concomitant]
     Active Substance: CLOPIDOGREL BISULFATE
     Dosage: 300 MILLIGRAM, QD
     Route: 065
  7. CLOPIDOGREL BISULFATE [Concomitant]
     Active Substance: CLOPIDOGREL BISULFATE
     Indication: Ischaemic stroke
     Dosage: 75 MILLIGRAM, QD
     Route: 065
  8. WARFARIN [Concomitant]
     Active Substance: WARFARIN
     Indication: Ischaemic stroke
     Dosage: 2.5 MILLIGRAM, QD
     Route: 065

REACTIONS (4)
  - Cerebral infarction [Recovered/Resolved]
  - Arteriosclerosis [Recovered/Resolved]
  - Stenosis [Recovered/Resolved]
  - Hyperlipidaemia [Recovered/Resolved]
